FAERS Safety Report 9781784 (Version 49)
Quarter: 2016Q4

REPORT INFORMATION
  Report Type: Report from Study
  Country: CA (occurrence: CA)
  Receive Date: 20131225
  Receipt Date: 20161010
  Transmission Date: 20170207
  Serious: Yes (Hospitalization, Disabling, Other)
  Sender: FDA-Public Use
  Company Number: CA-ROCHE-1310916

PATIENT
  Age: 37 Year
  Sex: Female
  Weight: 47 kg

DRUGS (39)
  1. STATEX (CANADA) [Concomitant]
     Active Substance: MORPHINE SULFATE
     Dosage: EVERY 3-4 HOURS AS NEEDED
     Route: 048
  2. TYKERB [Concomitant]
     Active Substance: LAPATINIB DITOSYLATE
     Route: 065
     Dates: start: 20120614
  3. DECADRON [Concomitant]
     Active Substance: DEXAMETHASONE
  4. AREDIA [Concomitant]
     Active Substance: PAMIDRONATE DISODIUM
     Route: 065
     Dates: start: 201102, end: 201307
  5. NAVELBINE [Concomitant]
     Active Substance: VINORELBINE TARTRATE
     Route: 065
     Dates: start: 201102, end: 201201
  6. CYTOXAN [Concomitant]
     Active Substance: CYCLOPHOSPHAMIDE
     Route: 065
     Dates: start: 200809, end: 200812
  7. MIRTAZAPINE. [Concomitant]
     Active Substance: MIRTAZAPINE
  8. KADCYLA [Suspect]
     Active Substance: ADO-TRASTUZUMAB EMTANSINE
     Dosage: DOSE REDUCED DUE TO PATIENT^S WEIGHT LOSS
     Route: 042
     Dates: start: 20131124
  9. KADCYLA [Suspect]
     Active Substance: ADO-TRASTUZUMAB EMTANSINE
     Route: 042
     Dates: start: 20150320
  10. KADCYLA [Suspect]
     Active Substance: ADO-TRASTUZUMAB EMTANSINE
     Dosage: THERAPY ON HOLD UNTIL 09/SEP/2016
     Route: 042
     Dates: start: 20150410, end: 20160415
  11. PANTOLOC [Concomitant]
     Active Substance: PANTOPRAZOLE SODIUM
     Route: 048
     Dates: start: 201308
  12. STATEX (CANADA) [Concomitant]
     Active Substance: MORPHINE SULFATE
     Dosage: AM (IN THE MORNING)
     Route: 065
  13. TAMOXIFEN [Concomitant]
     Active Substance: TAMOXIFEN
     Route: 065
  14. NOZINAN [Concomitant]
     Active Substance: LEVOMEPROMAZINE
     Dosage: HS (BEDTIME)
     Route: 065
  15. ADRIAMYCIN [Concomitant]
     Active Substance: DOXORUBICIN HYDROCHLORIDE
     Route: 065
     Dates: start: 200809, end: 200812
  16. KADCYLA [Suspect]
     Active Substance: ADO-TRASTUZUMAB EMTANSINE
     Route: 042
     Dates: start: 20131213
  17. STATEX (CANADA) [Concomitant]
     Active Substance: MORPHINE SULFATE
     Dosage: 5-10 MG PRN
     Route: 048
  18. TYLENOL [Concomitant]
     Active Substance: ACETAMINOPHEN
  19. KADCYLA [Suspect]
     Active Substance: ADO-TRASTUZUMAB EMTANSINE
     Indication: HER-2 POSITIVE BREAST CANCER
     Dosage: INITIAL DOSE
     Route: 042
     Dates: start: 20131122
  20. AMOXICILLIN/CLAVULANATE [Suspect]
     Active Substance: AMOXICILLIN\CLAVULANATE POTASSIUM
     Indication: PRODUCT USED FOR UNKNOWN INDICATION
     Route: 065
  21. ALCOHOL SWAB [Suspect]
     Active Substance: ISOPROPYL ALCOHOL
     Indication: PRODUCT USED FOR UNKNOWN INDICATION
     Route: 065
  22. COLACE [Concomitant]
     Active Substance: DOCUSATE SODIUM
     Route: 048
  23. HERCEPTIN [Suspect]
     Active Substance: TRASTUZUMAB
     Indication: BREAST CANCER
     Dosage: THERAPY ON HOLD UNTIL 09/SEP/2016
     Route: 042
     Dates: start: 200812, end: 20131114
  24. FENTANYL. [Concomitant]
     Active Substance: FENTANYL
     Route: 065
     Dates: start: 20121002
  25. CORTEF [Concomitant]
     Active Substance: HYDROCORTISONE
  26. NYSTATIN. [Concomitant]
     Active Substance: NYSTATIN
  27. FENTANYL. [Concomitant]
     Active Substance: FENTANYL
     Dosage: ONE PATCH 48 HOURS
     Route: 065
  28. MAXERAN [Concomitant]
     Active Substance: METOCLOPRAMIDE HYDROCHLORIDE
     Dosage: PRN
     Route: 065
  29. XGEVA [Concomitant]
     Active Substance: DENOSUMAB
     Route: 065
     Dates: start: 201306
  30. PROCHLORAZINE [Concomitant]
  31. SUBLINOX [Concomitant]
     Active Substance: ZOLPIDEM TARTRATE
  32. KADCYLA [Suspect]
     Active Substance: ADO-TRASTUZUMAB EMTANSINE
     Route: 042
     Dates: start: 20140626
  33. KADCYLA [Suspect]
     Active Substance: ADO-TRASTUZUMAB EMTANSINE
     Route: 042
     Dates: end: 20160729
  34. XELODA [Suspect]
     Active Substance: CAPECITABINE
     Indication: BREAST CANCER
     Route: 048
     Dates: start: 201205, end: 201309
  35. SENOKOT [Concomitant]
     Active Substance: SENNOSIDES
     Route: 048
  36. TAXOL [Concomitant]
     Active Substance: PACLITAXEL
     Route: 065
     Dates: start: 200812, end: 201310
  37. TAXOL [Concomitant]
     Active Substance: PACLITAXEL
     Route: 065
     Dates: start: 201309, end: 201310
  38. DIPHENHYDRAMINE. [Concomitant]
     Active Substance: DIPHENHYDRAMINE
  39. OXAZEPAM. [Concomitant]
     Active Substance: OXAZEPAM
     Dosage: AT BEDTIME
     Route: 048

REACTIONS (51)
  - Diarrhoea [Unknown]
  - Blood test abnormal [Unknown]
  - Weight decreased [Unknown]
  - Blood bilirubin decreased [Unknown]
  - General physical health deterioration [Unknown]
  - Injury corneal [Unknown]
  - Hypoaesthesia [Not Recovered/Not Resolved]
  - Oral herpes [Recovered/Resolved]
  - Back pain [Unknown]
  - Muscle spasms [Unknown]
  - Myalgia [Unknown]
  - Fatigue [Recovering/Resolving]
  - Fatigue [Recovered/Resolved]
  - Speech disorder [Not Recovered/Not Resolved]
  - Malignant neoplasm progression [Not Recovered/Not Resolved]
  - Muscle spasms [Not Recovered/Not Resolved]
  - Fatigue [Unknown]
  - Monocyte count increased [Unknown]
  - Cough [Not Recovered/Not Resolved]
  - Platelet count decreased [Not Recovered/Not Resolved]
  - Haematocrit decreased [Not Recovered/Not Resolved]
  - Blood glucose increased [Unknown]
  - Peripheral swelling [Recovered/Resolved]
  - Activated partial thromboplastin time prolonged [Unknown]
  - Dehydration [Unknown]
  - Ocular discomfort [Unknown]
  - Nasopharyngitis [Unknown]
  - Fatigue [Unknown]
  - Injection site inflammation [Not Recovered/Not Resolved]
  - Red blood cell count decreased [Not Recovered/Not Resolved]
  - Haemoglobin decreased [Not Recovered/Not Resolved]
  - Paraesthesia [Not Recovered/Not Resolved]
  - Dry eye [Recovered/Resolved]
  - Laryngitis [Unknown]
  - Constipation [Not Recovered/Not Resolved]
  - Influenza like illness [Unknown]
  - Infusion related reaction [Unknown]
  - Gastroenteritis [Recovered/Resolved]
  - Neutrophil count decreased [Recovered/Resolved]
  - Blood phosphorus increased [Unknown]
  - Blood pressure diastolic decreased [Unknown]
  - Arthralgia [Unknown]
  - Neutrophil count decreased [Not Recovered/Not Resolved]
  - Aspartate aminotransferase increased [Not Recovered/Not Resolved]
  - Catheter site erythema [Unknown]
  - Dry eye [Unknown]
  - Weight decreased [Not Recovered/Not Resolved]
  - Hypotension [Unknown]
  - White blood cell count decreased [Not Recovered/Not Resolved]
  - Mean platelet volume increased [Unknown]
  - Platelet count decreased [Unknown]

NARRATIVE: CASE EVENT DATE: 20131124
